FAERS Safety Report 7592626-1 (Version None)
Quarter: 2011Q2

REPORT INFORMATION
  Report Type: 
  Country: None (occurrence: None)
  Receive Date: 20110628
  Receipt Date: 20110613
  Transmission Date: 20111010
  Serious: Yes (Hospitalization)
  Sender: FDA-Public Use
  Company Number: 1000020053

PATIENT
  Age: 80 Year
  Sex: Male

DRUGS (8)
  1. SIMVASTATIN (SIMVASTATIN) (TABLETS) [Concomitant]
  2. TAMSULOSIN (TAMSULOSIN) (TABLETS) [Concomitant]
  3. DONEPEZIL (DONEPEZIL) (TABLETS) [Concomitant]
  4. INDAPAMIDE (INDAPAMIDE) (TABLETS) [Concomitant]
  5. TRIMETAZIDINE (TRIMETAZIDINE) (TABLETS) [Concomitant]
  6. STALEVO (LEVODOPA, CARBIDOPA, ENTACAPONE) (TABLETS) [Concomitant]
  7. AMANTADINE (AMANTADINE) (TABLETS) [Concomitant]
  8. MEMANTINE [Suspect]
     Indication: DEMENTIA ALZHEIMER'S TYPE
     Dosage: 5 MG (5 MG, 1 IN 1 D), ORAL
     Route: 048
     Dates: start: 20091117, end: 20091126

REACTIONS (4)
  - BALANCE DISORDER [None]
  - DISORIENTATION [None]
  - VOMITING [None]
  - NAUSEA [None]
